FAERS Safety Report 4599124-8 (Version None)
Quarter: 2005Q1

REPORT INFORMATION
  Report Type: 
  Country: None (occurrence: None)
  Receive Date: 20050302
  Receipt Date: 20050214
  Transmission Date: 20050727
  Serious: Yes (Hospitalization)
  Sender: FDA-Public Use
  Company Number: DSA_25239_2004

PATIENT
  Age: 74 Year
  Sex: Male

DRUGS (13)
  1. TEVETEN [Suspect]
     Indication: HYPERTENSION
     Dosage: 600 MG Q DAILY; PO
     Route: 048
     Dates: end: 20040711
  2. FELODIPINE [Suspect]
     Indication: ILL-DEFINED DISORDER
     Dosage: DF
  3. RAMIPRIL [Suspect]
     Indication: ILL-DEFINED DISORDER
     Dosage: DF
  4. MOLSIDOMIN [Suspect]
     Indication: ILL-DEFINED DISORDER
     Dosage: DF
  5. ARELIX [Suspect]
     Indication: HYPERTENSION
     Dosage: 3 MG Q DA; PO
     Route: 048
     Dates: end: 20040708
  6. CORDAREX [Suspect]
     Indication: ARRHYTHMIA
     Dosage: 200 MG Q DAY; PO
     Route: 048
  7. CORVATION RETARD [Suspect]
     Indication: CARDIAC DISORDER
     Dosage: 16 MG Q DAY; PO
     Route: 048
     Dates: end: 20040708
  8. DELMUNO [Suspect]
     Indication: CARDIAC DISORDER
     Dosage: 2.5 MG Q DAY; PO
     Route: 048
     Dates: end: 20040708
  9. BERLINSULIN H BALSAL [Concomitant]
  10. BERLINSULIN H NORMAL [Concomitant]
  11. ASPIRIN [Concomitant]
  12. METFORMIN HCL [Concomitant]
  13. PRAVASIN [Concomitant]

REACTIONS (4)
  - BUNDLE BRANCH BLOCK LEFT [None]
  - HYPOTENSION [None]
  - RENAL FAILURE [None]
  - SINUS BRADYCARDIA [None]
